FAERS Safety Report 9056295 (Version 1)
Quarter: 2013Q1

REPORT INFORMATION
  Report Type: Report from Study
  Country: VE (occurrence: VE)
  Receive Date: 20130205
  Receipt Date: 20130205
  Transmission Date: 20140127
  Serious: Yes (Hospitalization, Other)
  Sender: FDA-Public Use
  Company Number: VE-ABBOTT-13P-178-1043299-00

PATIENT
  Sex: Female
  Weight: 69 kg

DRUGS (1)
  1. HUMIRA [Suspect]
     Indication: PSORIASIS
     Route: 058
     Dates: start: 20110802, end: 201110

REACTIONS (3)
  - Mouth ulceration [Recovered/Resolved]
  - Gastrointestinal ulcer [Recovered/Resolved]
  - Vaginal ulceration [Recovered/Resolved]
